FAERS Safety Report 6762603-9 (Version None)
Quarter: 2010Q2

REPORT INFORMATION
  Report Type: 
  Country: None (occurrence: None)
  Receive Date: 20100609
  Receipt Date: 20100603
  Transmission Date: 20101027
  Serious: Yes (Hospitalization)
  Sender: FDA-Public Use
  Company Number: US-MERCK-1006USA00780

PATIENT
  Age: 73 Year
  Sex: Female

DRUGS (6)
  1. JANUVIA [Suspect]
     Indication: DIABETES MELLITUS
     Route: 048
     Dates: start: 20090101
  2. HYZAAR [Concomitant]
     Route: 048
  3. SYNTHROID [Concomitant]
     Route: 065
  4. METOPROLOL [Concomitant]
     Route: 065
  5. ACIPHEX [Concomitant]
     Route: 065
  6. SIMVASTATIN [Concomitant]
     Route: 048

REACTIONS (12)
  - ADVERSE EVENT [None]
  - BLOOD DISORDER [None]
  - COMA [None]
  - HYPOAESTHESIA [None]
  - JOINT SWELLING [None]
  - KIDNEY INFECTION [None]
  - NEUROPATHY PERIPHERAL [None]
  - PLATELET COUNT DECREASED [None]
  - RED BLOOD CELL COUNT DECREASED [None]
  - SEPSIS [None]
  - SWELLING [None]
  - WHITE BLOOD CELL COUNT DECREASED [None]
